FAERS Safety Report 6509638-9 (Version None)
Quarter: 2009Q4

REPORT INFORMATION
  Report Type: 
  Country: None (occurrence: None)
  Receive Date: 20091221
  Receipt Date: 20091221
  Transmission Date: 20100525
  Serious: Yes (Hospitalization)
  Sender: FDA-Public Use
  Company Number: None

PATIENT
  Sex: Male
  Weight: 138 kg

DRUGS (3)
  1. CARBOPLATIN [Suspect]
     Dosage: 2100 MG
  2. ERBITUX [Suspect]
     Dosage: 4704 MG
  3. TAXOL [Suspect]
     Dosage: 726 MG

REACTIONS (3)
  - BACTERAEMIA [None]
  - TACHYCARDIA [None]
  - TRICUSPID VALVE SCLEROSIS [None]
